FAERS Safety Report 25021948 (Version 1)
Quarter: 2025Q1

REPORT INFORMATION
  Report Type: Spontaneous
  Country: IN (occurrence: IN)
  Receive Date: 20250228
  Receipt Date: 20250228
  Transmission Date: 20250409
  Serious: Yes (Other)
  Sender: ZYDUS PHARM
  Company Number: IN-CADILA HEALTHCARE LIMITED-IN-ZYDUS-119823

PATIENT

DRUGS (2)
  1. TRAMADOL [Suspect]
     Active Substance: TRAMADOL
     Indication: Pain
     Route: 042
  2. TRAMADOL [Suspect]
     Active Substance: TRAMADOL
     Route: 042

REACTIONS (3)
  - Narcotic bowel syndrome [Unknown]
  - Hyperaesthesia [Unknown]
  - Intentional product misuse [Unknown]
